FAERS Safety Report 8407813-X (Version None)
Quarter: 2012Q2

REPORT INFORMATION
  Report Type: 
  Country: None (occurrence: None)
  Receive Date: 20120604
  Receipt Date: 20120524
  Transmission Date: 20120825
  Serious: Yes (Death, Hospitalization)
  Sender: FDA-Public Use
  Company Number: HU-BRISTOL-MYERS SQUIBB COMPANY-16545311

PATIENT
  Age: 69 Year
  Sex: Male
  Weight: 66 kg

DRUGS (9)
  1. NECITUMUMAB [Suspect]
     Indication: NON-SMALL CELL LUNG CANCER
     Dosage: LIQUID;INTERR ON 03APR12 (49 DAYS)AND RESTARTED ON 13APR12-13APR2012.
     Route: 065
     Dates: start: 20120215
  2. CISPLATIN [Suspect]
     Indication: NON-SMALL CELL LUNG CANCER
     Dosage: INTERR ON 03APR12 AND RESTARTED ON 13APR12-13APR2012
     Route: 065
     Dates: start: 20120215
  3. ONDANSETRON [Concomitant]
     Dates: start: 20120115
  4. BERODUAL [Concomitant]
     Dates: start: 20120125
  5. GEMCITABINE HYDROCHLORIDE [Suspect]
     Indication: NON-SMALL CELL LUNG CANCER
     Dosage: INTERR ON 03APR12 AND RESTARTED ON 13APR12-13APR2012 2250MG
     Route: 065
     Dates: start: 20120215
  6. FRAXIPARINE [Concomitant]
     Dates: start: 20120201
  7. PORTIRON [Concomitant]
     Dates: start: 20100101
  8. FRONTIN [Concomitant]
     Dates: start: 20120126
  9. FUROSEMIDE [Concomitant]
     Dates: start: 20120126

REACTIONS (3)
  - NEOPLASM MALIGNANT [None]
  - BLOOD CREATININE INCREASED [None]
  - ANAEMIA [None]
